FAERS Safety Report 5446522-6 (Version None)
Quarter: 2007Q3

REPORT INFORMATION
  Report Type: 
  Country: None (occurrence: None)
  Receive Date: 20070907
  Receipt Date: 20070829
  Transmission Date: 20080115
  Serious: Yes (Hospitalization, Other)
  Sender: FDA-Public Use
  Company Number: US-ROCHE-485892

PATIENT
  Age: 16 Year
  Sex: Male
  Weight: 65.8 kg

DRUGS (6)
  1. ACCUTANE [Suspect]
     Indication: ACNE
     Route: 048
     Dates: start: 19990929, end: 20000508
  2. PREDNISONE [Concomitant]
     Indication: ACNE
     Dates: start: 19991001
  3. ERYTHROMYCIN [Concomitant]
     Indication: ACNE
     Route: 048
  4. TRIAMCINOLONE [Concomitant]
     Dosage: ROUTE REPORTED AS INJ. STRENGTH REPORTED AS 3-10 MG/CC.
     Route: 050
     Dates: start: 19991001
  5. ZITHROMAX [Concomitant]
     Indication: ACNE
     Dates: start: 19991001
  6. DOXYCYCLINE [Concomitant]
     Route: 048

REACTIONS (15)
  - ANAEMIA [None]
  - ANXIETY [None]
  - APPENDICITIS [None]
  - COLITIS ULCERATIVE [None]
  - DEPRESSION [None]
  - DRY SKIN [None]
  - EMOTIONAL DISTRESS [None]
  - FATIGUE [None]
  - HAEMORRHAGE [None]
  - HEADACHE [None]
  - INFLAMMATORY BOWEL DISEASE [None]
  - INTESTINAL OBSTRUCTION [None]
  - IRRITABLE BOWEL SYNDROME [None]
  - LIP DRY [None]
  - RASH [None]
